FAERS Safety Report 16022333 (Version 1)
Quarter: 2019Q1

REPORT INFORMATION
  Report Type: Report from Study
  Country: CO (occurrence: CO)
  Receive Date: 20190301
  Receipt Date: 20190301
  Transmission Date: 20190418
  Serious: Yes (Other)
  Sender: FDA-Public Use
  Company Number: PHHY2019CO043313

PATIENT
  Sex: Female
  Weight: 66 kg

DRUGS (2)
  1. TAFINLAR [Suspect]
     Active Substance: DABRAFENIB MESYLATE
     Indication: METASTATIC MALIGNANT MELANOMA
     Dosage: 150 MG, QD
     Route: 048
     Dates: start: 20190206
  2. MEKINIST [Suspect]
     Active Substance: TRAMETINIB DIMETHYL SULFOXIDE
     Indication: METASTATIC MALIGNANT MELANOMA
     Dosage: 2 MG, QD
     Route: 048
     Dates: start: 20190206

REACTIONS (15)
  - Vision blurred [Unknown]
  - Inappropriate schedule of product administration [Unknown]
  - Headache [Unknown]
  - Discomfort [Unknown]
  - Myalgia [Unknown]
  - Chills [Unknown]
  - Gastrooesophageal reflux disease [Unknown]
  - Pyrexia [Unknown]
  - Choking [Unknown]
  - Seizure [Unknown]
  - Arthralgia [Unknown]
  - Asphyxia [Unknown]
  - Feeling cold [Unknown]
  - Fatigue [Unknown]
  - Constipation [Unknown]
